FAERS Safety Report 22060277 (Version 2)
Quarter: 2023Q2

REPORT INFORMATION
  Report Type: Report from Study
  Country: NL (occurrence: NL)
  Receive Date: 20230303
  Receipt Date: 20230515
  Transmission Date: 20230722
  Serious: Yes (Life-Threatening, Hospitalization, Other)
  Sender: FDA-Public Use
  Company Number: NL-AstraZeneca-2023A046021

PATIENT
  Age: 75 Day
  Sex: Male
  Weight: 2.3 kg

DRUGS (2)
  1. SYNAGIS [Suspect]
     Active Substance: PALIVIZUMAB
     Indication: Gestational age test
     Dosage: 15MG/KG MONTHLY
     Route: 030
     Dates: start: 20230201
  2. SYNAGIS [Suspect]
     Active Substance: PALIVIZUMAB
     Indication: Antiviral prophylaxis

REACTIONS (4)
  - Illness [Not Recovered/Not Resolved]
  - Respiratory failure [Recovered/Resolved]
  - Rhinovirus infection [Unknown]
  - SARS-CoV-2 test positive [Unknown]

NARRATIVE: CASE EVENT DATE: 20230216
